FAERS Safety Report 6379622-7 (Version None)
Quarter: 2009Q3

REPORT INFORMATION
  Report Type: 
  Country: None (occurrence: None)
  Receive Date: 20090924
  Receipt Date: 20090924
  Transmission Date: 20100115
  Serious: Yes (Hospitalization)
  Sender: FDA-Public Use
  Company Number: None

PATIENT
  Age: 63 Year
  Sex: Female
  Weight: 81.6475 kg

DRUGS (2)
  1. ZICAM COLD REMEDY NASAL GEL SWABS [Suspect]
     Indication: NASOPHARYNGITIS
     Dosage: 3 X DAY FOR 4 DAYS
     Dates: start: 20090328, end: 20090331
  2. UNIDENTIFIED MEDICATION [Concomitant]

REACTIONS (3)
  - DEHYDRATION [None]
  - PAROSMIA [None]
  - VIRAL INFECTION [None]
